FAERS Safety Report 5300622-X (Version None)
Quarter: 2007Q2

REPORT INFORMATION
  Report Type: 
  Country: None (occurrence: None)
  Receive Date: 20070418
  Receipt Date: 20070405
  Transmission Date: 20071010
  Serious: Yes (Hospitalization)
  Sender: FDA-Public Use
  Company Number: PHEH2007US04308

PATIENT
  Sex: Female

DRUGS (8)
  1. ZELNORM [Suspect]
     Indication: CONSTIPATION
     Dosage: 6 MG, BID
     Dates: end: 20070328
  2. ZELNORM [Suspect]
     Dosage: 6 MG, QD
     Dates: start: 20060101
  3. RYTHMOL [Concomitant]
  4. BENICAR [Concomitant]
  5. PREMPRO [Concomitant]
  6. COUMADIN [Concomitant]
  7. SKELAXIN [Concomitant]
  8. MAXZIDE [Concomitant]

REACTIONS (3)
  - ABDOMINAL PAIN [None]
  - BLOOD PRESSURE INADEQUATELY CONTROLLED [None]
  - TRANSIENT ISCHAEMIC ATTACK [None]
